FAERS Safety Report 6394391-2 (Version None)
Quarter: 2009Q4

REPORT INFORMATION
  Report Type: 
  Country: None (occurrence: None)
  Receive Date: 20091006
  Receipt Date: 20090928
  Transmission Date: 20100525
  Serious: Yes (Hospitalization)
  Sender: FDA-Public Use
  Company Number: ADR33892009

PATIENT
  Age: 74 Year
  Sex: Male

DRUGS (9)
  1. CIPROFLOXACIN [Suspect]
     Indication: URINARY RETENTION
     Dosage: 500 MG - BID
  2. CITALOPRAM HYDROBROMIDE [Suspect]
     Dosage: 20 MG / DAY
  3. ENALAPRIL MALEATE [Concomitant]
  4. ACETYLSALICYLIC ACID [Concomitant]
  5. FLUOXETINE [Concomitant]
  6. DIAZEPAM [Concomitant]
  7. SULPIRIDE [Concomitant]
  8. REBOXETINE [Concomitant]
  9. OXYBUTYNIN CHLORIDE [Concomitant]

REACTIONS (11)
  - AGITATION [None]
  - CHILLS [None]
  - COGNITIVE DISORDER [None]
  - CONFUSIONAL STATE [None]
  - DRUG INTERACTION [None]
  - DYSARTHRIA [None]
  - GAIT DISTURBANCE [None]
  - HYPERHIDROSIS [None]
  - SEROTONIN SYNDROME [None]
  - TREMOR [None]
  - URINARY RETENTION [None]
